FAERS Safety Report 21691446 (Version 1)
Quarter: 2022Q4

REPORT INFORMATION
  Report Type: Report from Study
  Country: US (occurrence: US)
  Receive Date: 20221207
  Receipt Date: 20221207
  Transmission Date: 20230113
  Serious: Yes (Hospitalization)
  Sender: FDA-Public Use
  Company Number: US-BoehringerIngelheim-2022-BI-205481

PATIENT
  Age: 55 Year
  Sex: Female

DRUGS (2)
  1. SPEVIGO [Suspect]
     Active Substance: SPESOLIMAB-SBZO
     Indication: Pustular psoriasis
     Route: 042
     Dates: start: 20221125, end: 20221125
  2. ACETERIN [Concomitant]
     Indication: Pustular psoriasis

REACTIONS (6)
  - Peripheral swelling [Unknown]
  - Gait disturbance [Unknown]
  - Rash [Unknown]
  - White blood cell count increased [Unknown]
  - Red blood cell sedimentation rate increased [Unknown]
  - Blood creatine increased [Unknown]
